FAERS Safety Report 24258924 (Version 1)
Quarter: 2024Q3

REPORT INFORMATION
  Report Type: Spontaneous
  Country: CN (occurrence: CN)
  Receive Date: 20240828
  Receipt Date: 20240828
  Transmission Date: 20241017
  Serious: Yes (Hospitalization, Other)
  Sender: PFIZER
  Company Number: CN-PFIZER INC-PV202400110598

PATIENT
  Age: 77 Year
  Sex: Female
  Weight: 40 kg

DRUGS (3)
  1. MEDROL [Suspect]
     Active Substance: METHYLPREDNISOLONE
     Indication: Rheumatoid arthritis
     Dosage: 8 MG, 1X/DAY
     Route: 048
     Dates: start: 20220627
  2. TOFACITINIB CITRATE [Suspect]
     Active Substance: TOFACITINIB CITRATE
     Indication: Rheumatoid arthritis
     Dosage: 5 MG, 2X/DAY
     Route: 048
     Dates: start: 20220627, end: 20230102
  3. HERBALS [Suspect]
     Active Substance: HERBALS
     Indication: Rheumatoid arthritis
     Dosage: 20 MG, 3X/DAY
     Route: 048
     Dates: start: 20220627, end: 20230102

REACTIONS (3)
  - Pneumonia [Recovering/Resolving]
  - Neutrophil count increased [Recovering/Resolving]
  - C-reactive protein increased [Recovering/Resolving]

NARRATIVE: CASE EVENT DATE: 20230102
